FAERS Safety Report 6909179-0 (Version None)
Quarter: 2010Q3

REPORT INFORMATION
  Report Type: 
  Country: None (occurrence: None)
  Receive Date: 20100805
  Receipt Date: 20100715
  Transmission Date: 20110219
  Serious: No
  Sender: FDA-Public Use
  Company Number: US-TYCO HEALTHCARE/MALLINCKRODT-T201001637

PATIENT
  Age: 42 Year
  Sex: Male

DRUGS (6)
  1. MORPHINE [Suspect]
     Indication: NEURALGIA
     Dosage: 30 MG Q8
     Route: 048
     Dates: start: 20100305, end: 20100326
  2. CYMBALTA [Concomitant]
     Indication: DEPRESSION
     Dosage: UNK
  3. DILAUDID [Concomitant]
     Indication: BREAKTHROUGH PAIN
     Dosage: 2 MG Q6
  4. DIAZEPAM [Concomitant]
     Dosage: UNK
  5. COLACE [Concomitant]
     Dosage: UNK
  6. TOPAMAX [Concomitant]
     Dosage: UNK

REACTIONS (3)
  - ABDOMINAL DISCOMFORT [None]
  - CONSTIPATION [None]
  - NAUSEA [None]
